FAERS Safety Report 23574569 (Version 1)
Quarter: 2024Q1

REPORT INFORMATION
  Report Type: Spontaneous
  Country: US (occurrence: US)
  Receive Date: 20240228
  Receipt Date: 20240228
  Transmission Date: 20240409
  Serious: No
  Sender: FDA-Public Use
  Company Number: US-ABBVIE-5655018

PATIENT
  Age: 70 Year
  Sex: Male

DRUGS (3)
  1. OZURDEX [Suspect]
     Active Substance: DEXAMETHASONE
     Indication: Retinal vein occlusion
     Dosage: TIME INTERVAL: AS NECESSARY: FORM STRENGTH: 0.7 MILLIGRAM
     Route: 047
     Dates: start: 202306, end: 202306
  2. OZURDEX [Suspect]
     Active Substance: DEXAMETHASONE
     Dosage: TIME INTERVAL: AS NECESSARY: FORM STRENGTH: 0.7 MILLIGRAM
     Route: 047
     Dates: start: 20240220, end: 20240220
  3. YUTIQ [Concomitant]
     Active Substance: FLUOCINOLONE ACETONIDE
     Indication: Product used for unknown indication
     Route: 047

REACTIONS (3)
  - Conjunctivitis [Recovered/Resolved]
  - Visual impairment [Unknown]
  - Intraocular pressure decreased [Unknown]

NARRATIVE: CASE EVENT DATE: 20230601
